FAERS Safety Report 10027002 (Version 3)
Quarter: 2014Q2

REPORT INFORMATION
  Report Type: Spontaneous
  Country: JP (occurrence: JP)
  Receive Date: 20140321
  Receipt Date: 20140422
  Transmission Date: 20141212
  Serious: Yes (Death)
  Sender: FDA-Public Use
  Company Number: JP-CELGENEUS-087-21880-14032291

PATIENT
  Age: 75 Year
  Sex: Male
  Weight: 61 kg

DRUGS (9)
  1. REVLIMID [Suspect]
     Indication: PLASMA CELL MYELOMA
     Dosage: 25 MILLIGRAM
     Route: 048
     Dates: start: 20140114
  2. CELECOX [Concomitant]
     Indication: BACK PAIN
     Dosage: 400 MILLIGRAM
     Route: 048
     Dates: start: 20130611
  3. MAGLAX [Concomitant]
     Indication: CONSTIPATION
     Dosage: 330 MILLIGRAM
     Route: 048
     Dates: start: 20130725
  4. BAYASPIRIN [Concomitant]
     Indication: THROMBOSIS PROPHYLAXIS
     Dosage: 100 MILLIGRAM
     Route: 048
     Dates: start: 20140114
  5. DIFLUCAN [Concomitant]
     Indication: PROPHYLAXIS
     Dosage: 200 MILLIGRAM
     Route: 048
     Dates: start: 20140117
  6. OMEPRAL [Concomitant]
     Indication: GASTRIC DISORDER
     Dosage: 20 MILLIGRAM
     Route: 048
     Dates: start: 20130509
  7. NORVASC [Concomitant]
     Indication: HYPERTENSION
     Dosage: 5 MILLIGRAM
     Route: 048
     Dates: start: 20130725
  8. DECADRON [Concomitant]
     Indication: PLASMA CELL MYELOMA
     Dosage: 20 MILLIGRAM
     Route: 048
     Dates: start: 20140114
  9. ZOMETA [Concomitant]
     Indication: SPINAL COMPRESSION FRACTURE
     Dosage: 4 MG/ 100 ML
     Route: 041

REACTIONS (1)
  - Multi-organ failure [Fatal]
